FAERS Safety Report 7713543-X (Version None)
Quarter: 2011Q3

REPORT INFORMATION
  Report Type: 
  Country: None (occurrence: None)
  Receive Date: 20110822
  Receipt Date: 20110805
  Transmission Date: 20111222
  Serious: Yes (Hospitalization)
  Sender: FDA-Public Use
  Company Number: 2011MA011403

PATIENT
  Age: 51 Year
  Sex: Male

DRUGS (3)
  1. VARENICLINE [Suspect]
     Indication: SMOKING CESSATION THERAPY
     Dosage: 0.5 MG;QD
  2. OXYCODONE HCL [Suspect]
     Indication: PROCEDURAL PAIN
     Dosage: Q2H
  3. DIAZEPAM [Suspect]
     Indication: MUSCLE RELAXANT THERAPY
     Dosage: 10 MG

REACTIONS (7)
  - PARANOIA [None]
  - MANIA [None]
  - DEPRESSED MOOD [None]
  - AFFECTIVE DISORDER [None]
  - IRRITABILITY [None]
  - DRUG WITHDRAWAL SYNDROME [None]
  - INSOMNIA [None]
